FAERS Safety Report 6277659-X (Version None)
Quarter: 2009Q3

REPORT INFORMATION
  Report Type: 
  Country: None (occurrence: None)
  Receive Date: 20090717
  Receipt Date: 20090717
  Transmission Date: 20100115
  Serious: Yes (Other)
  Sender: FDA-Public Use
  Company Number: None

PATIENT
  Age: 60 Year
  Sex: Female
  Weight: 101.1521 kg

DRUGS (1)
  1. BIAXIN [Suspect]
     Indication: HELICOBACTER INFECTION
     Dosage: 1 TWICE DAILY PO
     Route: 048
     Dates: start: 20090626, end: 20090711

REACTIONS (5)
  - HYPOAESTHESIA ORAL [None]
  - LIP SWELLING [None]
  - ORAL PAIN [None]
  - SIMILAR REACTION ON PREVIOUS EXPOSURE TO DRUG [None]
  - SWOLLEN TONGUE [None]
